FAERS Safety Report 6534268-2 (Version None)
Quarter: 2010Q1

REPORT INFORMATION
  Report Type: 
  Country: None (occurrence: None)
  Receive Date: 20100112
  Receipt Date: 20100104
  Transmission Date: 20100710
  Serious: Yes (Hospitalization, Other)
  Sender: FDA-Public Use
  Company Number: JP-JNJFOC-20091001269

PATIENT
  Sex: Male
  Weight: 51 kg

DRUGS (2)
  1. LOPEMIN [Suspect]
     Indication: DIARRHOEA
     Route: 048
  2. TS-1 [Suspect]
     Indication: PANCREATIC CARCINOMA
     Route: 048

REACTIONS (2)
  - CHOLECYSTITIS ACUTE [None]
  - HAEMOGLOBIN DECREASED [None]
